FAERS Safety Report 11723828 (Version 1)
Quarter: 2015Q4

REPORT INFORMATION
  Report Type: Report from Study
  Country: FR (occurrence: FR)
  Receive Date: 20151111
  Receipt Date: 20151111
  Transmission Date: 20160304
  Serious: Yes (Other)
  Sender: FDA-Public Use
  Company Number: FR-MYLANLABS-2015M1038744

PATIENT

DRUGS (2)
  1. CLADRIBINE. [Suspect]
     Active Substance: CLADRIBINE
     Indication: LANGERHANS^ CELL HISTIOCYTOSIS
     Dosage: 9 MG/M 2 PER DAY FOR 5 DAYS AS A 2-HOUR IV INFUSION
     Route: 041
  2. CYTARABINE. [Suspect]
     Active Substance: CYTARABINE
     Indication: LANGERHANS^ CELL HISTIOCYTOSIS
     Dosage: 500 MG/M 2 TWICE DAILY FOR 5 DAYS AS A 2-HOUR IV INFUSION
     Route: 041

REACTIONS (2)
  - Pancytopenia [Unknown]
  - Anogenital warts [Unknown]
